FAERS Safety Report 20061861 (Version 2)
Quarter: 2022Q1

REPORT INFORMATION
  Report Type: Spontaneous
  Country: US (occurrence: US)
  Receive Date: 20211112
  Receipt Date: 20220205
  Transmission Date: 20220423
  Serious: No
  Sender: FDA-Public Use
  Company Number: US-CELGENE-USA-20211100493

PATIENT
  Sex: Male

DRUGS (3)
  1. POMALYST [Suspect]
     Active Substance: POMALIDOMIDE
     Indication: Plasma cell myeloma recurrent
     Dosage: 4 MILLIGRAM
     Route: 048
     Dates: start: 20210721
  2. DOXYCYCLINE [Concomitant]
     Active Substance: DOXYCYCLINE
     Indication: Sinusitis
     Route: 048
     Dates: start: 20220121, end: 20220128
  3. HONEY [Concomitant]
     Active Substance: HONEY
     Indication: Sinusitis
     Route: 065
     Dates: start: 20220121

REACTIONS (1)
  - Sinusitis [Recovered/Resolved]
